FAERS Safety Report 15439573 (Version 1)
Quarter: 2018Q3

REPORT INFORMATION
  Report Type: Spontaneous
  Country: US (occurrence: US)
  Receive Date: 20180924
  Receipt Date: 20180924
  Transmission Date: 20181010
  Serious: Yes (Hospitalization)
  Sender: FDA-Public Use
  Company Number: None

PATIENT
  Age: 81 Year

DRUGS (1)
  1. APIXABAN [Suspect]
     Active Substance: APIXABAN
     Indication: ATRIAL FIBRILLATION
     Route: 048
     Dates: start: 20160708, end: 20180819

REACTIONS (4)
  - Gastrointestinal haemorrhage [None]
  - Haemoglobin decreased [None]
  - Gastric haemorrhage [None]
  - Arteriovenous malformation [None]

NARRATIVE: CASE EVENT DATE: 20180819
